FAERS Safety Report 4950713-8 (Version None)
Quarter: 2006Q1

REPORT INFORMATION
  Report Type: 
  Country: None (occurrence: None)
  Receive Date: 20060322
  Receipt Date: 20051026
  Transmission Date: 20060701
  Serious: Yes (Other)
  Sender: FDA-Public Use
  Company Number: US-MERCK-0510USA09472

PATIENT
  Age: 67 Year
  Sex: Female
  Weight: 70 kg

DRUGS (9)
  1. VIOXX [Suspect]
     Indication: ARTHRITIS
     Route: 048
     Dates: start: 20000524, end: 20000621
  2. VIOXX [Suspect]
     Route: 048
     Dates: start: 20000202, end: 20000523
  3. PRILOSEC [Concomitant]
     Route: 048
  4. ZANTAC [Concomitant]
     Route: 065
  5. FLUOXETINE [Concomitant]
     Route: 065
  6. HYDROXYZINE PAMOATE [Concomitant]
     Route: 065
  7. CLONAZEPAM [Concomitant]
     Route: 065
  8. ADALAT [Concomitant]
     Route: 065
  9. RELAFEN [Concomitant]
     Route: 065

REACTIONS (22)
  - ABDOMINAL PAIN UPPER [None]
  - ANXIETY [None]
  - ARTHRALGIA [None]
  - CARDIOVASCULAR DISORDER [None]
  - CHEST PAIN [None]
  - CHOLELITHIASIS [None]
  - COUGH [None]
  - DRUG HYPERSENSITIVITY [None]
  - FALL [None]
  - FATIGUE [None]
  - FEELING JITTERY [None]
  - FOOT FRACTURE [None]
  - GASTROOESOPHAGEAL REFLUX DISEASE [None]
  - GOITRE [None]
  - HIATUS HERNIA [None]
  - MAJOR DEPRESSION [None]
  - OSTEOPOROSIS [None]
  - PYREXIA [None]
  - SHOULDER PAIN [None]
  - SINUS CONGESTION [None]
  - THYROID NEOPLASM [None]
  - VOCAL CORD CYST [None]
